FAERS Safety Report 23949750 (Version 1)
Quarter: 2024Q2

REPORT INFORMATION
  Report Type: Spontaneous
  Country: PT (occurrence: PT)
  Receive Date: 20240607
  Receipt Date: 20240607
  Transmission Date: 20240716
  Serious: Yes (Hospitalization, Other)
  Sender: FDA-Public Use
  Company Number: PT-EMA-DD-20240517-7482661-090602

PATIENT
  Age: 17 Year
  Sex: Female

DRUGS (10)
  1. ONDANSETRON [Suspect]
     Active Substance: ONDANSETRON
  2. LEVETIRACETAM [Suspect]
     Active Substance: LEVETIRACETAM
  3. MONTELUKAST [Suspect]
     Active Substance: MONTELUKAST SODIUM
  4. ACETAMINOPHEN [Suspect]
     Active Substance: ACETAMINOPHEN
  5. COTRIMOXAZOLE [Suspect]
     Active Substance: SULFAMETHOXAZOLE\TRIMETHOPRIM
  6. HALOPERIDOL [Suspect]
     Active Substance: HALOPERIDOL
  7. IBUPROFEN [Suspect]
     Active Substance: IBUPROFEN
  8. METAMIZOLE [Suspect]
     Active Substance: METAMIZOLE
  9. SERTRALINE [Suspect]
     Active Substance: SERTRALINE HYDROCHLORIDE
  10. TRAZODONE [Suspect]
     Active Substance: TRAZODONE HYDROCHLORIDE

REACTIONS (3)
  - Intentional overdose [Unknown]
  - Suicide attempt [Unknown]
  - Toxicity to various agents [Unknown]
